FAERS Safety Report 8708568 (Version 6)
Quarter: 2013Q3

REPORT INFORMATION
  Report Type: Other
  Country: JP (occurrence: JP)
  Receive Date: 20120806
  Receipt Date: 20130911
  Transmission Date: 20140515
  Serious: Yes (Hospitalization)
  Sender: FDA-Public Use
  Company Number: JP-NAPPMUNDI-MAG-2012-0002247

PATIENT
  Age: 82 Year
  Sex: Female
  Weight: 40 kg

DRUGS (4)
  1. BUPRENORPHINE TRANSDERMAL SYSTEM [Suspect]
     Indication: BACK PAIN
     Dosage: 10 MCG, Q1H
     Route: 062
     Dates: start: 20110901, end: 20110907
  2. BUPRENORPHINE TRANSDERMAL SYSTEM [Suspect]
     Dosage: 5 MCG, Q1H
     Route: 062
     Dates: start: 20110819, end: 20110901
  3. TRAMADOL HYDROCHLORIDE AND ACETAMINOPHEN [Concomitant]
     Indication: BACK PAIN
     Dosage: UNK
     Route: 048
     Dates: start: 20110907, end: 20110909
  4. ACETAMINOPHEN [Concomitant]
     Indication: BACK PAIN
     Dosage: 325 MG, UNK

REACTIONS (2)
  - Delirium [Recovered/Resolved]
  - Rash [Unknown]
